FAERS Safety Report 17610320 (Version 1)
Quarter: 2020Q2

REPORT INFORMATION
  Report Type: Spontaneous
  Country: CN (occurrence: CN)
  Receive Date: 20200401
  Receipt Date: 20200401
  Transmission Date: 20200713
  Serious: Yes (Other)
  Sender: FDA-Public Use
  Company Number: NVSC2020CN087954

PATIENT
  Age: 31 Year
  Sex: Male

DRUGS (6)
  1. METHOTREXATE. [Suspect]
     Active Substance: METHOTREXATE
     Indication: PROPHYLAXIS AGAINST GRAFT VERSUS HOST DISEASE
     Dosage: UNK
     Route: 065
  2. MYCOPHENOLATE MOFETIL. [Suspect]
     Active Substance: MYCOPHENOLATE MOFETIL
     Indication: PROPHYLAXIS AGAINST GRAFT VERSUS HOST DISEASE
     Dosage: UNK
     Route: 065
  3. CYCLOSPORINE. [Suspect]
     Active Substance: CYCLOSPORINE
     Indication: PROPHYLAXIS AGAINST GRAFT VERSUS HOST DISEASE
     Dosage: UNK
     Route: 065
  4. CYCLOPHOSPHAMIDE. [Concomitant]
     Active Substance: CYCLOPHOSPHAMIDE
     Indication: BONE MARROW CONDITIONING REGIMEN
     Dosage: 1.8 G/M2, QD (ROM DAYS -5 TO -4)
     Route: 042
  5. BUSULFAN. [Concomitant]
     Active Substance: BUSULFAN
     Indication: BONE MARROW CONDITIONING REGIMEN
     Dosage: 3.2 KG/M2, QD (OM DAYS -8 TO -6)
     Route: 042
  6. ARA-C [Concomitant]
     Active Substance: CYTARABINE
     Indication: BONE MARROW CONDITIONING REGIMEN
     Dosage: 4 G/M2, QD (FROM DAYS -10 TO -9)
     Route: 042

REACTIONS (7)
  - Pneumonia [Recovering/Resolving]
  - Cytomegalovirus infection [Recovering/Resolving]
  - Graft versus host disease in skin [Recovering/Resolving]
  - Cystitis haemorrhagic [Recovering/Resolving]
  - Product use in unapproved indication [Unknown]
  - Graft versus host disease [Unknown]
  - Leukaemia recurrent [Unknown]
